FAERS Safety Report 7906332-4 (Version None)
Quarter: 2011Q4

REPORT INFORMATION
  Report Type: 
  Country: None (occurrence: None)
  Receive Date: 20111109
  Receipt Date: 20111109
  Transmission Date: 20120403
  Serious: No
  Sender: FDA-Public Use
  Company Number: None

PATIENT
  Age: 77 Year
  Sex: Male
  Weight: 86.637 kg

DRUGS (3)
  1. PREVACID [Suspect]
     Indication: BARRETT'S OESOPHAGUS
     Dosage: DAILY ORAL CAPSULE
     Route: 048
  2. ZANTAC [Suspect]
     Indication: BARRETT'S OESOPHAGUS
     Dosage: DAILY ORAL CAPSULE
     Route: 048
  3. OMEPRAZOLE [Suspect]
     Indication: BARRETT'S OESOPHAGUS
     Dosage: DAILY ORAL CAPSULE
     Route: 048

REACTIONS (1)
  - DRUG INEFFECTIVE [None]
